FAERS Safety Report 24206460 (Version 4)
Quarter: 2024Q4

REPORT INFORMATION
  Report Type: Spontaneous
  Country: ES (occurrence: ES)
  Receive Date: 20240813
  Receipt Date: 20241009
  Transmission Date: 20250115
  Serious: Yes (Death, Hospitalization, Other)
  Sender: APELLIS PHARMACEUTICALS
  Company Number: ES-BIOVITRUM-2024-ES-010766

PATIENT

DRUGS (2)
  1. PEGCETACOPLAN [Suspect]
     Active Substance: PEGCETACOPLAN
     Indication: Product used for unknown indication
     Dosage: UNKNOWN
  2. THYMOCYTE IMMUNE GLOBULIN NOS [Suspect]
     Active Substance: THYMOCYTE IMMUNE GLOBULIN NOS
     Indication: Bone marrow failure

REACTIONS (3)
  - Cerebral haemorrhage [Fatal]
  - Hepatotoxicity [Recovered/Resolved]
  - Bone marrow failure [Unknown]

NARRATIVE: CASE EVENT DATE: 20240726
